FAERS Safety Report 4756930-4 (Version None)
Quarter: 2005Q3

REPORT INFORMATION
  Report Type: 
  Country: None (occurrence: None)
  Receive Date: 20050830
  Receipt Date: 20050808
  Transmission Date: 20060218
  Serious: Yes (Other)
  Sender: FDA-Public Use
  Company Number: US-MERCK-0508USA01462

PATIENT
  Age: 61 Year
  Sex: Female
  Weight: 92 kg

DRUGS (3)
  1. ZOCOR [Suspect]
     Route: 048
  2. TRACLEER [Suspect]
     Indication: PULMONARY HYPERTENSION
     Route: 048
     Dates: start: 20041203, end: 20050203
  3. TRACLEER [Suspect]
     Route: 048
     Dates: start: 20041101, end: 20041202

REACTIONS (4)
  - ANXIETY [None]
  - ASPARTATE AMINOTRANSFERASE INCREASED [None]
  - DRUG INEFFECTIVE [None]
  - HEPATIC ENZYME INCREASED [None]
